FAERS Safety Report 21172874 (Version 1)
Quarter: 2022Q3

REPORT INFORMATION
  Report Type: Spontaneous
  Country: FR (occurrence: FR)
  Receive Date: 20220804
  Receipt Date: 20220804
  Transmission Date: 20221027
  Serious: Yes (Hospitalization)
  Sender: FDA-Public Use
  Company Number: None

PATIENT
  Age: 50 Year
  Sex: Female
  Weight: 86 kg

DRUGS (3)
  1. IVERMECTIN [Suspect]
     Active Substance: IVERMECTIN
     Indication: Rosacea
     Dosage: 12 MILLIGRAM, 4 TABS OF 3 MG IN 1 TAKE
     Route: 048
     Dates: start: 20220613, end: 20220613
  2. IVERMECTIN [Suspect]
     Active Substance: IVERMECTIN
     Dosage: 12 MILLIGRAM, 4 TABS OF 3 MG IN 1 TAKE
     Route: 048
     Dates: start: 20220606, end: 20220606
  3. METRONIDAZOLE [Suspect]
     Active Substance: METRONIDAZOLE
     Indication: Rosacea
     Dosage: 1.5 GRAM, QD, 1 TAB OF 500 MG MORNING NOON AND EVENING
     Route: 048
     Dates: start: 20220606, end: 20220612

REACTIONS (1)
  - Acute generalised exanthematous pustulosis [Recovering/Resolving]

NARRATIVE: CASE EVENT DATE: 20220613
